FAERS Safety Report 5201926-1 (Version None)
Quarter: 2007Q1

REPORT INFORMATION
  Report Type: 
  Country: None (occurrence: None)
  Receive Date: 20070104
  Receipt Date: 20061218
  Transmission Date: 20070707
  Serious: Yes (Other)
  Sender: FDA-Public Use
  Company Number: 30287

PATIENT
  Age: 78 Year
  Sex: Male

DRUGS (10)
  1. ALDARA [Suspect]
     Indication: BASAL CELL CARCINOMA
     Dosage: (1) TOPICAL
     Route: 061
     Dates: start: 20060901
  2. IBUPROFEN [Concomitant]
  3. GLUCOSAMINE [Concomitant]
  4. ASPIRIN [Concomitant]
  5. ACETAMINOPHEN W/ CODEINE [Concomitant]
  6. LISINOPRIL [Concomitant]
  7. BENDROFLUAZIDE [Concomitant]
  8. EPILIM [Concomitant]
  9. AXID [Concomitant]
  10. CO-CODAMOL [Concomitant]

REACTIONS (7)
  - APPLICATION SITE DISCHARGE [None]
  - APPLICATION SITE INFECTION [None]
  - APPLICATION SITE INFLAMMATION [None]
  - APPLICATION SITE PRURITUS [None]
  - APPLICATION SITE VESICLES [None]
  - INFECTION [None]
  - SKIN DISORDER [None]
